FAERS Safety Report 10475524 (Version 2)
Quarter: 2014Q4

REPORT INFORMATION
  Report Type: Report from Study
  Country: US (occurrence: US)
  Receive Date: 20140925
  Receipt Date: 20141117
  Transmission Date: 20150528
  Serious: Yes (Hospitalization)
  Sender: FDA-Public Use
  Company Number: US-VERTEX PHARMACEUTICALS-2014-004079

PATIENT
  Sex: Female

DRUGS (1)
  1. IVACAFTOR [Suspect]
     Active Substance: IVACAFTOR
     Indication: CYSTIC FIBROSIS
     Dosage: UNK
     Route: 048
     Dates: start: 20120828

REACTIONS (5)
  - Influenza [Recovering/Resolving]
  - Pseudomonas infection [Recovering/Resolving]
  - Nausea [Unknown]
  - Headache [Unknown]
  - Staphylococcal infection [Recovering/Resolving]
